FAERS Safety Report 14150363 (Version 2)
Quarter: 2017Q4

REPORT INFORMATION
  Report Type: Spontaneous
  Country: TH (occurrence: TH)
  Receive Date: 20171101
  Receipt Date: 20171121
  Transmission Date: 20180321
  Serious: Yes (Death)
  Sender: FDA-Public Use
  Company Number: TH-IMPAX LABORATORIES, INC-2017-IPXL-02994

PATIENT
  Age: 31 Year
  Sex: Male
  Weight: 94 kg

DRUGS (1)
  1. PROPRANOLOL HYDROCHLORIDE IR [Suspect]
     Active Substance: PROPRANOLOL HYDROCHLORIDE
     Indication: SUICIDE ATTEMPT
     Dosage: 6 G, 150 TABLETS (40 MG EACH)
     Route: 048

REACTIONS (3)
  - Intentional overdose [Fatal]
  - Cardiac arrest [Fatal]
  - Completed suicide [Fatal]
